FAERS Safety Report 11325130 (Version 1)
Quarter: 2015Q3

REPORT INFORMATION
  Report Type: Other
  Country: GB (occurrence: GB)
  Receive Date: 20150730
  Receipt Date: 20150730
  Transmission Date: 20151125
  Serious: Yes (Hospitalization)
  Sender: FDA-Public Use
  Company Number: GB-MYLANLABS-2015M1024569

PATIENT

DRUGS (2)
  1. ETHINYLESTRADIOL [Suspect]
     Active Substance: ETHINYL ESTRADIOL
     Indication: ORAL CONTRACEPTION
     Dosage: 30 ?G, UNK
     Route: 048
     Dates: end: 20150707
  2. LEVONORGESTREL. [Suspect]
     Active Substance: LEVONORGESTREL
     Indication: ORAL CONTRACEPTION
     Dosage: 150 ?G, UNK
     Route: 048
     Dates: end: 20150707

REACTIONS (2)
  - Headache [Unknown]
  - Intracranial venous sinus thrombosis [Not Recovered/Not Resolved]
